FAERS Safety Report 12952308 (Version 1)
Quarter: 2016Q4

REPORT INFORMATION
  Report Type: Spontaneous
  Country: US (occurrence: US)
  Receive Date: 20161117
  Receipt Date: 20161117
  Transmission Date: 20170207
  Serious: No
  Sender: FDA-Public Use
  Company Number: US-NOVOPROD-496014

PATIENT
  Age: 48 Year
  Sex: Female

DRUGS (1)
  1. NOVOLOG [Suspect]
     Active Substance: INSULIN ASPART
     Indication: TYPE 2 DIABETES MELLITUS
     Dosage: UNK
     Route: 058
     Dates: start: 201412, end: 201605

REACTIONS (5)
  - Sluggishness [Recovered/Resolved]
  - Asthenia [Recovered/Resolved]
  - Feeling abnormal [Recovered/Resolved]
  - Bladder disorder [Recovered/Resolved]
  - Depression [Recovered/Resolved]
